FAERS Safety Report 16976576 (Version 1)
Quarter: 2019Q4

REPORT INFORMATION
  Report Type: Report from Study
  Country: IL (occurrence: IL)
  Receive Date: 20191030
  Receipt Date: 20191030
  Transmission Date: 20200122
  Serious: Yes (Other)
  Sender: FDA-Public Use
  Company Number: PHHY2019IL157029

PATIENT
  Sex: Female

DRUGS (13)
  1. TRAMETINIB [Suspect]
     Active Substance: TRAMETINIB
     Dosage: 2 MG, Q48H
     Route: 048
  2. TRAMETINIB [Suspect]
     Active Substance: TRAMETINIB
     Dosage: 2 MG, QD (FOR 2 DAYS AND FOLLOWED BY A DAY OFF)
     Route: 048
  3. TRAMETINIB [Suspect]
     Active Substance: TRAMETINIB
     Dosage: 2 MG, Q48H
     Route: 048
     Dates: end: 20191001
  4. TRAMETINIB [Suspect]
     Active Substance: TRAMETINIB
     Dosage: UNK
     Route: 065
     Dates: start: 20191003
  5. DABRAFENIB [Suspect]
     Active Substance: DABRAFENIB
     Dosage: 150 MG, BID
     Route: 048
  6. DABRAFENIB [Suspect]
     Active Substance: DABRAFENIB
     Dosage: UNK
     Route: 048
     Dates: start: 20191003
  7. TRAMETINIB [Suspect]
     Active Substance: TRAMETINIB
     Dosage: (DOSE TO EVERY 2 DAYS)
     Route: 048
  8. DABRAFENIB [Suspect]
     Active Substance: DABRAFENIB
     Dosage: (DOSE TO EVERY 2 DAYS)
     Route: 048
  9. DABRAFENIB [Suspect]
     Active Substance: DABRAFENIB
     Indication: ANAPLASTIC THYROID CANCER
     Dosage: UNK
     Route: 048
     Dates: start: 20190610
  10. DABRAFENIB [Suspect]
     Active Substance: DABRAFENIB
     Dosage: 150 MG, QD
     Route: 048
  11. DABRAFENIB [Suspect]
     Active Substance: DABRAFENIB
     Dosage: 150 MG (2X75 MG), QD
     Route: 048
     Dates: end: 20191001
  12. TRAMETINIB [Suspect]
     Active Substance: TRAMETINIB
     Dosage: 2 MG, UNK
     Route: 048
  13. TRAMETINIB [Suspect]
     Active Substance: TRAMETINIB
     Indication: ANAPLASTIC THYROID CANCER
     Dosage: UNK
     Route: 048
     Dates: start: 20190610

REACTIONS (3)
  - Skin toxicity [Recovered/Resolved]
  - Neutropenia [Recovered/Resolved]
  - Pneumonia [Recovered/Resolved]

NARRATIVE: CASE EVENT DATE: 20190615
